FAERS Safety Report 15475475 (Version 1)
Quarter: 2018Q4

REPORT INFORMATION
  Report Type: Report from Study
  Country: AU (occurrence: AU)
  Receive Date: 20181008
  Receipt Date: 20181008
  Transmission Date: 20190205
  Serious: Yes (Other)
  Sender: FDA-Public Use
  Company Number: AU-009507513-1802AUS009384

PATIENT
  Age: 54 Year
  Sex: Female

DRUGS (1)
  1. PEMBROLIZUMAB. [Suspect]
     Active Substance: PEMBROLIZUMAB
     Indication: BLADDER ADENOCARCINOMA STAGE UNSPECIFIED
     Dosage: UNK, EVERY 3 WEEKS, STRENGTH 100 MG
     Route: 042
     Dates: start: 20171101

REACTIONS (5)
  - Deafness [Not Recovered/Not Resolved]
  - Arthritis [Unknown]
  - Aphonia [Not Recovered/Not Resolved]
  - Otorrhoea [Unknown]
  - Influenza [Recovered/Resolved]

NARRATIVE: CASE EVENT DATE: 20171115
